FAERS Safety Report 18226730 (Version 1)
Quarter: 2020Q3

REPORT INFORMATION
  Report Type: Spontaneous
  Country: US (occurrence: US)
  Receive Date: 20200903
  Receipt Date: 20200903
  Transmission Date: 20201103
  Serious: Yes (Other)
  Sender: FDA-Public Use
  Company Number: NVSC2020US241182

PATIENT
  Age: 17 Year
  Sex: Female

DRUGS (3)
  1. IFOSFAMIDE. [Suspect]
     Active Substance: IFOSFAMIDE
     Indication: HEPATOSPLENIC T-CELL LYMPHOMA
     Dosage: TWO CYCLES
     Route: 065
  2. CARBOPLATIN. [Suspect]
     Active Substance: CARBOPLATIN
     Indication: HEPATOSPLENIC T-CELL LYMPHOMA
     Dosage: TWO CYCLES
     Route: 065
  3. ETOPOSIDE. [Suspect]
     Active Substance: ETOPOSIDE
     Indication: HEPATOSPLENIC T-CELL LYMPHOMA
     Dosage: TWO CYCLES
     Route: 065

REACTIONS (3)
  - Hepatosplenic T-cell lymphoma [Unknown]
  - Malignant neoplasm progression [Unknown]
  - Product use in unapproved indication [Unknown]
